FAERS Safety Report 4983192-5 (Version None)
Quarter: 2006Q2

REPORT INFORMATION
  Report Type: 
  Country: None (occurrence: None)
  Receive Date: 20060426
  Receipt Date: 20060406
  Transmission Date: 20061013
  Serious: Yes (Hospitalization, Disabling)
  Sender: FDA-Public Use
  Company Number: JP-JPN-A200601152

PATIENT
  Age: 68 Year
  Sex: Female
  Weight: 36 kg

DRUGS (9)
  1. PAXIL [Suspect]
     Indication: DEPRESSION
     Dosage: 10MG THREE TIMES PER DAY
     Route: 048
     Dates: start: 20060228, end: 20060401
  2. SYMMETREL [Concomitant]
     Indication: PARKINSON'S DISEASE
     Dosage: 150MG PER DAY
     Route: 048
     Dates: start: 20031021
  3. MENESIT [Concomitant]
     Indication: PARKINSON'S DISEASE
     Dosage: 300MG PER DAY
     Route: 048
     Dates: start: 20030603
  4. HALCION [Concomitant]
     Indication: INSOMNIA
     Dosage: .25MG PER DAY
     Route: 048
     Dates: start: 20060228, end: 20060401
  5. NAUZELIN [Concomitant]
     Indication: NAUSEA
     Dosage: 30MG PER DAY
     Route: 048
     Dates: start: 20060228, end: 20060401
  6. SOLANAX [Concomitant]
     Indication: ANXIETY
     Dosage: 1.2MG PER DAY
     Route: 048
     Dates: start: 20060228, end: 20060401
  7. ASPIRIN [Concomitant]
     Indication: CEREBRAL INFARCTION
     Dosage: 1U PER DAY
     Route: 048
     Dates: start: 20020801
  8. ADALAT [Concomitant]
     Indication: HYPERTENSION
     Dosage: 20MG PER DAY
     Route: 048
     Dates: start: 20040831
  9. BLOPRESS [Concomitant]
     Indication: HYPERTENSION
     Dosage: 8MG PER DAY
     Route: 048
     Dates: start: 20030702

REACTIONS (15)
  - AKINESIA [None]
  - BLOOD CREATINE PHOSPHOKINASE INCREASED [None]
  - BLOOD CREATININE INCREASED [None]
  - BLOOD UREA INCREASED [None]
  - DEHYDRATION [None]
  - DYSPHAGIA [None]
  - HALLUCINATION [None]
  - HALLUCINATION, VISUAL [None]
  - MANIA [None]
  - MUSCULOSKELETAL STIFFNESS [None]
  - NEUROLEPTIC MALIGNANT SYNDROME [None]
  - ORAL INTAKE REDUCED [None]
  - PYREXIA [None]
  - TREMOR [None]
  - WHITE BLOOD CELL COUNT INCREASED [None]
